FAERS Safety Report 22064075 (Version 1)
Quarter: 2023Q1

REPORT INFORMATION
  Report Type: Report from Study
  Country: DE (occurrence: DE)
  Receive Date: 20230306
  Receipt Date: 20230306
  Transmission Date: 20230418
  Serious: Yes (Other)
  Sender: FDA-Public Use
  Company Number: DE-CELLTRION INC.-2023DE004344

PATIENT

DRUGS (4)
  1. TRASTUZUMAB [Suspect]
     Active Substance: TRASTUZUMAB
     Indication: Breast cancer
     Dosage: 594 MG EVERY 3 WEEKS; 02/DEC/2021, RECEIVED LAST RECENT DOSE 594 MG OF TRASTUZUMAB PRIOR TO ADVERSE
     Route: 065
     Dates: start: 20211202, end: 20220407
  2. CARBOPLATIN [Suspect]
     Active Substance: CARBOPLATIN
     Indication: Breast cancer
     Dosage: EVERY 3 WEEKS; 02/DEC/2021, RECEIVED LAST RECENT DOSE 849.3 MG OF CARBOPLATIN PRIOR TO ADVERSE EVENT
     Route: 065
     Dates: start: 20211111, end: 20220317
  3. PERTUZUMAB [Suspect]
     Active Substance: PERTUZUMAB
     Indication: Breast cancer
     Dosage: 420 MG EVERY 3 WEEKS; 02/DEC/2021, RECEIVED LAST RECENT DOSE 420 MG OF PERTUZUMAB PRIOR TO ADVERSE E
     Route: 065
     Dates: start: 20211202, end: 20220407
  4. DOCETAXEL [Suspect]
     Active Substance: DOCETAXEL
     Indication: Breast cancer
     Dosage: 162.75 MG EVERY 3 WEEKS; 02/DEC/2021, RECEIVED LAST RECENT DOSE 162.75 MG OF DOCETAXEL PRIOR TO ADVE
     Route: 065
     Dates: start: 20211111, end: 20220317

REACTIONS (2)
  - Polyneuropathy [Recovering/Resolving]
  - Off label use [Unknown]

NARRATIVE: CASE EVENT DATE: 20211227
